FAERS Safety Report 5780689-5 (Version None)
Quarter: 2008Q2

REPORT INFORMATION
  Report Type: 
  Country: None (occurrence: None)
  Receive Date: 20080620
  Receipt Date: 20080617
  Transmission Date: 20081010
  Serious: Yes (Hospitalization)
  Sender: FDA-Public Use
  Company Number: AU-BOEHRINGER INGELHEIM GMBH, GERMANY-2008-BP-09472AU

PATIENT
  Sex: Female
  Weight: 60 kg

DRUGS (2)
  1. MICARDIS [Suspect]
     Indication: ADVERSE EVENT
     Route: 048
     Dates: start: 20080110, end: 20080119
  2. DIGOXIN [Concomitant]

REACTIONS (6)
  - ASTHENIA [None]
  - HEADACHE [None]
  - NAUSEA [None]
  - THERAPEUTIC AGENT TOXICITY [None]
  - TREMOR [None]
  - TRISMUS [None]
